FAERS Safety Report 10385928 (Version 1)
Quarter: 2014Q3

REPORT INFORMATION
  Report Type: Spontaneous
  Country: GB (occurrence: None)
  Receive Date: 20140812
  Receipt Date: 20140812
  Transmission Date: 20150326
  Serious: Yes (Hospitalization)
  Sender: FDA-Public Use
  Company Number: FK2O1403106

PATIENT
  Age: 48 Year
  Sex: Male

DRUGS (3)
  1. CHLORDIAZEPOXIDE (CHLORDIAZEPOXIDE) (CHLORDIAZEPOXIDE) [Suspect]
     Active Substance: CHLORDIAZEPOXIDE
     Indication: SUPPLEMENTATION THERAPY
     Route: 048
  2. THIAMINE (THIAMINE) [Suspect]
     Active Substance: THIAMINE
     Indication: SUPPLEMENTATION THERAPY
     Route: 042
  3. SODIUM CHLORIDE 0.9% INJECTION, USP (SODIUM CHLORIDE) [Suspect]
     Active Substance: SODIUM CHLORIDE
     Indication: SUPPLEMENTATION THERAPY
     Route: 042

REACTIONS (10)
  - Fall [None]
  - Hyperreflexia [None]
  - Quadriparesis [None]
  - Lethargy [None]
  - Dizziness [None]
  - Dysphagia [None]
  - Gait disturbance [None]
  - Osmotic demyelination syndrome [None]
  - Memory impairment [None]
  - Delirium [None]
